FAERS Safety Report 4616096-8 (Version None)
Quarter: 2005Q1

REPORT INFORMATION
  Report Type: 
  Country: None (occurrence: None)
  Receive Date: 20050323
  Receipt Date: 20050317
  Transmission Date: 20050727
  Serious: Yes (Hospitalization)
  Sender: FDA-Public Use
  Company Number: 200512517GDDC

PATIENT
  Age: 80 Year
  Sex: Female

DRUGS (6)
  1. ARAVA [Suspect]
     Route: 048
     Dates: start: 20030801, end: 20040701
  2. METHYLPREDNISOLONE [Concomitant]
     Indication: RHEUMATOID ARTHRITIS
     Route: 048
     Dates: start: 20021101, end: 20050301
  3. ENALAPRIL [Concomitant]
     Route: 048
     Dates: start: 20010101, end: 20050301
  4. LEVOTHYROXINE SODIUM [Concomitant]
     Route: 048
  5. CALCIUM CARBONATE [Concomitant]
     Route: 048
     Dates: start: 20021101, end: 20050301
  6. ALFA D [Concomitant]
     Route: 048
     Dates: start: 20021101, end: 20050301

REACTIONS (2)
  - ARTHRALGIA [None]
  - ASEPTIC NECROSIS BONE [None]
